FAERS Safety Report 8481145-6 (Version None)
Quarter: 2012Q3

REPORT INFORMATION
  Report Type: 
  Country: None (occurrence: None)
  Receive Date: 20120702
  Receipt Date: 20120626
  Transmission Date: 20120928
  Serious: Yes (Hospitalization, Other)
  Sender: FDA-Public Use
  Company Number: PHHY2012BR044521

PATIENT
  Sex: Male

DRUGS (2)
  1. AMLODIPINE [Suspect]
     Indication: HYPERTENSION
     Dosage: 1 DF (VALS 160 MG, AMLO 5 MG), A DAY
  2. AMLODIPINE [Suspect]
     Dosage: 1 DF (VALS 160 MG, AMLO 5 MG), A DAY

REACTIONS (1)
  - PNEUMONIA [None]
